FAERS Safety Report 18594112 (Version 2)
Quarter: 2021Q4

REPORT INFORMATION
  Report Type: Spontaneous
  Country: FI (occurrence: FI)
  Receive Date: 20201209
  Receipt Date: 20211008
  Transmission Date: 20220304
  Serious: Yes (Other)
  Sender: FDA-Public Use
  Company Number: None

PATIENT

DRUGS (2)
  1. LEVETIRACETAM [Suspect]
     Active Substance: LEVETIRACETAM
     Indication: Epilepsy
     Dosage: UNK (2000 MG DAILY)
     Route: 065
     Dates: start: 2014
  2. LACOSAMIDE [Suspect]
     Active Substance: LACOSAMIDE
     Indication: Epilepsy
     Dosage: UNK (600 MG DAILY)
     Route: 065
     Dates: start: 2014

REACTIONS (3)
  - Syncope [Unknown]
  - Atrioventricular block first degree [Unknown]
  - Overdose [Unknown]

NARRATIVE: CASE EVENT DATE: 20140101
